FAERS Safety Report 5319448-6 (Version None)
Quarter: 2007Q2

REPORT INFORMATION
  Report Type: 
  Country: None (occurrence: None)
  Receive Date: 20070508
  Receipt Date: 20070426
  Transmission Date: 20071010
  Serious: No
  Sender: FDA-Public Use
  Company Number: US-ELI_LILLY_AND_COMPANY-US200704006093

PATIENT
  Age: 26 Year
  Sex: Male

DRUGS (3)
  1. CYMBALTA [Suspect]
     Route: 048
  2. ABILIFY [Concomitant]
  3. EFFEXOR [Concomitant]

REACTIONS (3)
  - HAEMATOCHEZIA [None]
  - HEPATIC ENZYME INCREASED [None]
  - VOMITING [None]
